FAERS Safety Report 13272816 (Version 1)
Quarter: 2017Q1

REPORT INFORMATION
  Report Type: Spontaneous
  Country: None (occurrence: US)
  Receive Date: 20170224
  Receipt Date: 20170224
  Transmission Date: 20170428
  Serious: No
  Sender: FDA-Public Use
  Company Number: None

PATIENT
  Age: 47 Year
  Sex: Female

DRUGS (1)
  1. IBRANCE [Suspect]
     Active Substance: PALBOCICLIB
     Indication: BREAST CANCER FEMALE
     Dosage: 125MG 21 DAYS ON 7 OFF PO
     Route: 048
     Dates: start: 20170202

REACTIONS (4)
  - Dysgeusia [None]
  - Fatigue [None]
  - Blood iron decreased [None]
  - Stomatitis [None]

NARRATIVE: CASE EVENT DATE: 20170222
